FAERS Safety Report 7220656-8 (Version None)
Quarter: 2011Q1

REPORT INFORMATION
  Report Type: 
  Country: None (occurrence: None)
  Receive Date: 20110111
  Receipt Date: 20101115
  Transmission Date: 20110831
  Serious: No
  Sender: FDA-Public Use
  Company Number: US-BAYER-2010-008198

PATIENT
  Sex: Male
  Weight: 127 kg

DRUGS (6)
  1. BAYER EXTRA STRENGTH PLUS [Suspect]
  2. LIPITOR [Concomitant]
  3. DICYCLOMINE [Concomitant]
  4. ALEVE (CAPLET) [Suspect]
     Indication: BACK PAIN
     Dosage: UNK
     Route: 048
     Dates: start: 20101116
  5. ATENOLOL [Concomitant]
  6. JANUVIA [Concomitant]

REACTIONS (1)
  - STOMATITIS [None]
